FAERS Safety Report 4335723-6 (Version None)
Quarter: 2004Q2

REPORT INFORMATION
  Report Type: 
  Country: None (occurrence: None)
  Receive Date: 20040406
  Receipt Date: 20040325
  Transmission Date: 20050107
  Serious: Yes (Hospitalization)
  Sender: FDA-Public Use
  Company Number: 04P-163-0254629-00

PATIENT
  Age: 24 Year
  Sex: Male
  Weight: 79.3795 kg

DRUGS (9)
  1. DEPAKOTE 500MG (DEPAKOTE) (DIVALOPROEX SODIUM) (DIVALOPROEX SODIUM) [Suspect]
     Indication: OPPOSITIONAL DEFIANT DISORDER
     Dosage: SEE IMAGE
     Dates: start: 20030101, end: 20040101
  2. DEPAKOTE 500MG (DEPAKOTE) (DIVALOPROEX SODIUM) (DIVALOPROEX SODIUM) [Suspect]
     Indication: SOCIAL PHOBIA
     Dosage: SEE IMAGE
     Dates: start: 20030101, end: 20040101
  3. DEPAKOTE 500MG (DEPAKOTE) (DIVALOPROEX SODIUM) (DIVALOPROEX SODIUM) [Suspect]
     Indication: OPPOSITIONAL DEFIANT DISORDER
     Dosage: SEE IMAGE
     Dates: start: 20040101, end: 20040101
  4. DEPAKOTE 500MG (DEPAKOTE) (DIVALOPROEX SODIUM) (DIVALOPROEX SODIUM) [Suspect]
     Indication: SOCIAL PHOBIA
     Dosage: SEE IMAGE
     Dates: start: 20040101, end: 20040101
  5. DEPAKOTE 500MG (DEPAKOTE) (DIVALOPROEX SODIUM) (DIVALOPROEX SODIUM) [Suspect]
     Indication: OPPOSITIONAL DEFIANT DISORDER
     Dosage: SEE IMAGE
     Dates: start: 20040101, end: 20040101
  6. DEPAKOTE 500MG (DEPAKOTE) (DIVALOPROEX SODIUM) (DIVALOPROEX SODIUM) [Suspect]
     Indication: SOCIAL PHOBIA
     Dosage: SEE IMAGE
     Dates: start: 20040101, end: 20040101
  7. VENLAFAXINE HCL [Concomitant]
  8. QUETIAPINE [Concomitant]
  9. PAROXETINE HCL [Concomitant]

REACTIONS (5)
  - DIZZINESS [None]
  - GUN SHOT WOUND [None]
  - LOSS OF CONSCIOUSNESS [None]
  - OVERDOSE [None]
  - SKIN GRAFT [None]
